FAERS Safety Report 13639850 (Version 1)
Quarter: 2017Q2

REPORT INFORMATION
  Report Type: Spontaneous
  Country: US (occurrence: US)
  Receive Date: 20170609
  Receipt Date: 20170609
  Transmission Date: 20170830
  Serious: No
  Sender: FDA-Public Use
  Company Number: US-ROCHE-1466203

PATIENT
  Sex: Female

DRUGS (3)
  1. TRILEPTAL [Concomitant]
     Active Substance: OXCARBAZEPINE
  2. KLONOPIN [Suspect]
     Active Substance: CLONAZEPAM
     Dosage: TAKE 1 PILL AT NIGHT
     Route: 048
  3. KLONOPIN [Suspect]
     Active Substance: CLONAZEPAM
     Indication: SEIZURE
     Dosage: TAKE IN MORNING
     Route: 048

REACTIONS (2)
  - Abasia [Unknown]
  - Underdose [Unknown]
